FAERS Safety Report 5963819-1 (Version None)
Quarter: 2008Q4

REPORT INFORMATION
  Report Type: 
  Country: None (occurrence: None)
  Receive Date: 20081124
  Receipt Date: 20081118
  Transmission Date: 20090506
  Serious: Yes (Hospitalization)
  Sender: FDA-Public Use
  Company Number: FR-WYE-G02594508

PATIENT
  Sex: Female

DRUGS (7)
  1. EFFEXOR [Suspect]
     Indication: DEPRESSION
     Dosage: UNKNOWN
     Route: 048
     Dates: end: 20080201
  2. EFFEXOR [Suspect]
     Route: 048
     Dates: start: 20080201, end: 20080301
  3. RISPERDAL [Concomitant]
     Dosage: UNKNOWN
     Route: 048
     Dates: end: 20080227
  4. KARDEGIC [Concomitant]
     Route: 048
  5. REMINYL [Suspect]
     Dosage: UNKNOWN
     Route: 048
     Dates: end: 20080201
  6. REMINYL [Suspect]
     Route: 048
     Dates: start: 20080201, end: 20080301
  7. AMLOD [Concomitant]
     Route: 048

REACTIONS (4)
  - FALL [None]
  - MOBILITY DECREASED [None]
  - PSYCHOMOTOR RETARDATION [None]
  - TOXIC ENCEPHALOPATHY [None]
